FAERS Safety Report 26069024 (Version 1)
Quarter: 2025Q4

REPORT INFORMATION
  Report Type: Spontaneous
  Country: US (occurrence: US)
  Receive Date: 20251120
  Receipt Date: 20251120
  Transmission Date: 20260118
  Serious: Yes (Other)
  Sender: BAXTER
  Company Number: US-BAXTER-2025BAX024151

PATIENT
  Age: 65 Year
  Sex: Male

DRUGS (11)
  1. CYCLOPHOSPHAMIDE [Suspect]
     Active Substance: CYCLOPHOSPHAMIDE
     Indication: Glomerulonephritis
     Dosage: EIGHT CYCLES
     Route: 065
  2. CYCLOPHOSPHAMIDE [Suspect]
     Active Substance: CYCLOPHOSPHAMIDE
     Indication: Cryoglobulinaemia
  3. DEXAMETHASONE [Suspect]
     Active Substance: DEXAMETHASONE
     Indication: Cryoglobulinaemia
     Dosage: EIGHT CYCLES
     Route: 065
  4. DEXAMETHASONE [Suspect]
     Active Substance: DEXAMETHASONE
     Indication: Glomerulonephritis
  5. LENALIDOMIDE [Suspect]
     Active Substance: LENALIDOMIDE
     Indication: Glomerulonephritis
     Route: 065
  6. LENALIDOMIDE [Suspect]
     Active Substance: LENALIDOMIDE
     Indication: Cryoglobulinaemia
  7. BORTEZOMIB [Concomitant]
     Active Substance: BORTEZOMIB
     Indication: Cryoglobulinaemia
     Dosage: EIGHT CYCLES
     Route: 065
  8. BORTEZOMIB [Concomitant]
     Active Substance: BORTEZOMIB
     Indication: Glomerulonephritis
  9. DARATUMUMAB [Concomitant]
     Active Substance: DARATUMUMAB
     Indication: Cryoglobulinaemia
     Dosage: SIX CYCLES
     Route: 065
  10. DARATUMUMAB [Concomitant]
     Active Substance: DARATUMUMAB
     Indication: Glomerulonephritis
  11. TECLISTAMAB [Concomitant]
     Active Substance: TECLISTAMAB
     Indication: Cryoglobulinaemia
     Route: 065

REACTIONS (10)
  - Cardiac dysfunction [Unknown]
  - Hypertensive crisis [Unknown]
  - Skin necrosis [Unknown]
  - Disease progression [Unknown]
  - Skin ulcer [Unknown]
  - Extremity necrosis [Unknown]
  - Ejection fraction decreased [Unknown]
  - Ventricular hypokinesia [Unknown]
  - Haematuria [Unknown]
  - N-terminal prohormone brain natriuretic peptide increased [Unknown]
